FAERS Safety Report 10454390 (Version 1)
Quarter: 2014Q3

REPORT INFORMATION
  Report Type: Spontaneous
  Country: US (occurrence: US)
  Receive Date: 20140915
  Receipt Date: 20140915
  Transmission Date: 20150326
  Serious: No
  Sender: FDA-Public Use
  Company Number: US-BAYER-2014-137769

PATIENT
  Age: 79 Year
  Sex: Female
  Weight: 52 kg

DRUGS (3)
  1. ALEVE [Suspect]
     Active Substance: NAPROXEN SODIUM
     Indication: BACK PAIN
     Dosage: 2 DF, BID
     Route: 048
     Dates: start: 20140909, end: 20140910
  2. BAYER GENUINE ASPIRIN [Suspect]
     Active Substance: ASPIRIN
     Indication: BACK PAIN
     Dosage: 2 DF, BID (NOT MORE THAN 10 CONSECUTIVE DAYS)
     Route: 048
     Dates: start: 201402, end: 201402
  3. BAYER GENUINE ASPIRIN [Suspect]
     Active Substance: ASPIRIN
     Indication: BACK PAIN
     Dosage: 2 DF, TID (NOT MORE THAN 10 CONSECUTIVE DAYS)
     Route: 048
     Dates: start: 201402, end: 201402

REACTIONS (4)
  - Drug ineffective [Unknown]
  - Drug ineffective [Unknown]
  - Extra dose administered [None]
  - Drug ineffective [Unknown]

NARRATIVE: CASE EVENT DATE: 201402
